FAERS Safety Report 8815004 (Version 2)
Quarter: 2012Q4

REPORT INFORMATION
  Report Type: 
  Country: JP (occurrence: JP)
  Receive Date: 20120928
  Receipt Date: 20121022
  Transmission Date: 20130627
  Serious: Yes (Other)
  Sender: FDA-Public Use
  Company Number: JP-PFIZER INC-2012238367

PATIENT
  Age: 8 Week
  Sex: Female
  Weight: 5.64 kg

DRUGS (3)
  1. CORTRIL [Suspect]
     Indication: ADRENOGENITAL SYNDROME
     Dosage: 7 mg, 3x/day
     Route: 048
     Dates: start: 20110811
  2. FLORINEF [Suspect]
     Indication: ADRENOGENITAL SYNDROME
     Dosage: 0.2 mg, 3x/day
     Route: 048
     Dates: start: 20110819
  3. SODIUM CHLORIDE [Concomitant]
     Indication: ADRENOGENITAL SYNDROME
     Dosage: 1g, six times/day
     Route: 048
     Dates: start: 20110819

REACTIONS (2)
  - Ovarian cyst [Recovered/Resolved]
  - Genital haemorrhage [Recovered/Resolved]
